FAERS Safety Report 4811070-0 (Version None)
Quarter: 2005Q4

REPORT INFORMATION
  Report Type: 
  Country: None (occurrence: None)
  Receive Date: 20051027
  Receipt Date: 20050811
  Transmission Date: 20060501
  Serious: Yes (Hospitalization, Other)
  Sender: FDA-Public Use
  Company Number: 2005SE04621

PATIENT

DRUGS (7)
  1. BLOPRESS [Suspect]
     Indication: HYPERTENSION
     Route: 048
     Dates: start: 20050210, end: 20050805
  2. BLOPRESS [Suspect]
     Indication: ATRIAL FIBRILLATION
     Route: 048
     Dates: start: 20050210, end: 20050805
  3. TAKEPRON [Concomitant]
     Route: 048
  4. DIGITALIS [Concomitant]
     Route: 065
  5. ASPIRIN [Concomitant]
     Route: 065
  6. LASIX [Concomitant]
     Route: 065
  7. RENIVACE [Concomitant]
     Route: 048

REACTIONS (1)
  - HYPOGLYCAEMIA [None]
